FAERS Safety Report 20624709 (Version 5)
Quarter: 2022Q2

REPORT INFORMATION
  Report Type: Report from Study
  Country: US (occurrence: US)
  Receive Date: 20220323
  Receipt Date: 20220621
  Transmission Date: 20220721
  Serious: Yes (Other)
  Sender: FDA-Public Use
  Company Number: US-BIOGEN-2022BI01106168

PATIENT
  Age: 48 Year
  Sex: Female
  Weight: 133 kg

DRUGS (21)
  1. TYSABRI [Suspect]
     Active Substance: NATALIZUMAB
     Indication: Multiple sclerosis
     Route: 042
     Dates: start: 20210416
  2. TYSABRI [Suspect]
     Active Substance: NATALIZUMAB
     Route: 042
  3. TYSABRI [Suspect]
     Active Substance: NATALIZUMAB
     Dosage: 300MG/ML
     Route: 042
     Dates: start: 202103
  4. TYSABRI [Suspect]
     Active Substance: NATALIZUMAB
     Route: 042
     Dates: start: 20210416, end: 20220107
  5. ELAVIL [Concomitant]
     Active Substance: AMITRIPTYLINE HYDROCHLORIDE
     Indication: Insomnia
     Route: 048
     Dates: start: 20211111
  6. ELAVIL [Concomitant]
     Active Substance: AMITRIPTYLINE HYDROCHLORIDE
     Dosage: PATIENT IS TAKING DIFFERENTLY: 25MG BY MOUTH EVERY NIGHT
     Route: 048
     Dates: start: 20201221, end: 20211220
  7. TYLENOL [Concomitant]
     Active Substance: ACETAMINOPHEN
     Indication: Pain
     Dosage: TAKE EVERY 6 HOURS AS NEEDED
     Route: 048
  8. TOTAL B WITH C (VITAMIN B COMPLEX WITH VITAMIN C) [Concomitant]
     Indication: Product used for unknown indication
     Route: 048
  9. LAC-HYDRIN (AMMONIUM LACTATE) [Concomitant]
     Indication: Product used for unknown indication
     Dosage: APPLY 1 APPLICATION TOPICALLY DAILY
     Route: 061
     Dates: start: 20201006
  10. LIORESAL [Concomitant]
     Active Substance: BACLOFEN
     Indication: Product used for unknown indication
     Route: 048
     Dates: start: 20210204, end: 20210524
  11. CHOLECALCIFEROL + VITAMIN D3 [Concomitant]
     Route: 048
  12. COLESTID (COLESTIPOL) [Concomitant]
     Indication: Product used for unknown indication
     Route: 048
     Dates: start: 20191001
  13. CRANBERRY [Concomitant]
     Active Substance: CRANBERRY
     Indication: Product used for unknown indication
     Route: 048
  14. FISH OIL [Concomitant]
     Active Substance: FISH OIL
     Indication: Product used for unknown indication
     Route: 048
  15. LEXAPRO [Concomitant]
     Active Substance: ESCITALOPRAM OXALATE
     Indication: Product used for unknown indication
     Route: 048
     Dates: start: 20210225, end: 20210706
  16. NEURONTIN [Concomitant]
     Active Substance: GABAPENTIN
     Indication: Pain
     Route: 048
     Dates: start: 20210524
  17. NEURONTIN [Concomitant]
     Active Substance: GABAPENTIN
     Dosage: TAKE EXTRA 600 MILLIGRAM DOSE AS NEEDED IF HAVING BAD NIGHTS AND WAKE UP WITH RIGHT SIDED PAIN
     Route: 065
  18. CANNABIS SATIVA SUBSP. INDICA TOP [Concomitant]
     Active Substance: CANNABIS SATIVA SUBSP. INDICA TOP
     Indication: Product used for unknown indication
     Dosage: TAKE BY MOUTH NIGHTLY AS NEEDED TWICE A WEEK
     Route: 048
  19. PREVACID [Concomitant]
     Active Substance: LANSOPRAZOLE
     Indication: Product used for unknown indication
     Route: 048
     Dates: start: 20201230
  20. OMEPRAZOLE [Concomitant]
     Active Substance: OMEPRAZOLE
     Indication: Product used for unknown indication
     Route: 065
  21. ZOFRAN ODT [Concomitant]
     Active Substance: ONDANSETRON HYDROCHLORIDE
     Indication: Nausea
     Dosage: TAKE 1 TABLET 4MG BY MOUTH EVERY 8 HOURS AS NEEDED FOR NAUSEA
     Route: 048
     Dates: start: 20210204, end: 20210601

REACTIONS (3)
  - Pituitary tumour benign [Unknown]
  - Multiple sclerosis [Not Recovered/Not Resolved]
  - Prescribed underdose [Unknown]

NARRATIVE: CASE EVENT DATE: 20220308
